FAERS Safety Report 11927405 (Version 13)
Quarter: 2018Q4

REPORT INFORMATION
  Report Type: Spontaneous
  Country: BR (occurrence: BR)
  Receive Date: 20160119
  Receipt Date: 20181130
  Transmission Date: 20190204
  Serious: Yes (Hospitalization, Other)
  Sender: FDA-Public Use
  Company Number: BR-PFIZER INC-2015333978

PATIENT
  Age: 60 Year
  Sex: Female
  Weight: 58 kg

DRUGS (15)
  1. FRONTAL [Suspect]
     Active Substance: ALPRAZOLAM
     Indication: CEREBRAL ISCHAEMIA
     Dosage: 2 MG, UNK
     Route: 048
     Dates: start: 2005
  2. DIOVAN [Concomitant]
     Active Substance: VALSARTAN
     Dosage: 320 MG, DAILY
  3. PURAN [Concomitant]
     Active Substance: LEVOTHYROXINE SODIUM
     Indication: HYPERTHYROIDISM
     Dosage: 50 MG, DAILY
  4. FRONTAL [Suspect]
     Active Substance: ALPRAZOLAM
     Indication: CEREBRAL DISORDER
     Dosage: 1 MG, DAILY
     Route: 048
  5. FRONTAL [Suspect]
     Active Substance: ALPRAZOLAM
     Dosage: 1 MG, 3X/DAY AS NEEDED
  6. SINVASTACOR [Concomitant]
     Active Substance: SIMVASTATIN
     Indication: BLOOD CHOLESTEROL INCREASED
     Dosage: 1 TABLET DAILY
     Dates: start: 2005
  7. FRONTAL [Suspect]
     Active Substance: ALPRAZOLAM
     Dosage: 1 MG IN THE MORNING AND 1 MG AT 19:00U
  8. FRONTAL [Suspect]
     Active Substance: ALPRAZOLAM
     Dosage: UNK
  9. DIOVAN [Concomitant]
     Active Substance: VALSARTAN
     Indication: HYPERTENSION
     Dosage: 1 TABLET 2C (AS REPORTED) DAILY
  10. PLAVIX [Concomitant]
     Active Substance: CLOPIDOGREL BISULFATE
     Dosage: UNK
     Dates: start: 2010, end: 2014
  11. FRONTAL [Suspect]
     Active Substance: ALPRAZOLAM
     Indication: ANXIETY
     Dosage: 1 TABLET AT DAWN
     Route: 048
  12. FRONTAL [Suspect]
     Active Substance: ALPRAZOLAM
     Indication: FEAR
     Dosage: 2 MG, 2X/DAY
     Route: 048
     Dates: start: 2010
  13. FRONTAL [Suspect]
     Active Substance: ALPRAZOLAM
     Dosage: 2 MG PER DAY (HALF IN THE MORNING AND HALF AT NIGHT)
  14. FRONTAL [Suspect]
     Active Substance: ALPRAZOLAM
     Dosage: UNK
  15. DIOVAN [Concomitant]
     Active Substance: VALSARTAN
     Dosage: UNK

REACTIONS (45)
  - Hepatitis [Unknown]
  - Panic attack [Unknown]
  - Inflammation [Unknown]
  - Yellow skin [Unknown]
  - Asthma [Unknown]
  - Auditory disorder [Not Recovered/Not Resolved]
  - Arthritis [Unknown]
  - Pain [Unknown]
  - Aggression [Unknown]
  - Speech disorder [Unknown]
  - Vascular dementia [Unknown]
  - Urinary tract infection [Unknown]
  - Underweight [Unknown]
  - Chromaturia [Unknown]
  - Blister [Unknown]
  - Malaise [Unknown]
  - Venous occlusion [Recovered/Resolved]
  - Syncope [Unknown]
  - Insomnia [Unknown]
  - Feeling abnormal [Not Recovered/Not Resolved]
  - Seasonal allergy [Unknown]
  - Blood pressure increased [Unknown]
  - Pneumonia [Unknown]
  - Arterial disorder [Unknown]
  - Dyspnoea [Unknown]
  - Ear injury [Unknown]
  - Intentional product use issue [Unknown]
  - Visual impairment [Unknown]
  - Gastritis [Unknown]
  - Dyspnoea [Unknown]
  - Headache [Unknown]
  - Pruritus [Unknown]
  - Disorientation [Unknown]
  - Memory impairment [Unknown]
  - Heart rate increased [Unknown]
  - Cerebral disorder [Unknown]
  - Dizziness [Unknown]
  - Anxiety [Unknown]
  - Fatigue [Unknown]
  - Cerebral ischaemia [Unknown]
  - Urinary retention [Unknown]
  - Arthropod bite [Unknown]
  - Drug ineffective [Unknown]
  - Hypokinesia [Unknown]
  - Disease recurrence [Unknown]

NARRATIVE: CASE EVENT DATE: 2007
